FAERS Safety Report 4547514-1 (Version None)
Quarter: 2005Q1

REPORT INFORMATION
  Report Type: 
  Country: None (occurrence: None)
  Receive Date: 20041227
  Receipt Date: 20040924
  Transmission Date: 20050727
  Serious: No
  Sender: FDA-Public Use
  Company Number: 04P-163-0274800-00

PATIENT
  Age: 62 Year
  Sex: Female
  Weight: 68.0396 kg

DRUGS (9)
  1. HUMIRA [Suspect]
     Indication: RHEUMATOID ARTHRITIS
     Dosage: 40 MG, 1 IN 2 WK, SUBCUTANEOUS
     Route: 058
     Dates: start: 20040915
  2. PREDNISONE [Concomitant]
  3. METHOTREXATE SODIUM [Concomitant]
  4. FOLIC ACID [Concomitant]
  5. NIFEDIPINE [Concomitant]
  6. ATORVASTATIN [Concomitant]
  7. ESTROGENS CONJUGATED [Concomitant]
  8. ESOMEPRAZOLE [Concomitant]
  9. CALCIUM D3 ^STADA^ [Concomitant]

REACTIONS (3)
  - INJECTION SITE ERYTHEMA [None]
  - PYREXIA [None]
  - RASH GENERALISED [None]
